FAERS Safety Report 6071753-4 (Version None)
Quarter: 2009Q1

REPORT INFORMATION
  Report Type: 
  Country: None (occurrence: None)
  Receive Date: 20090210
  Receipt Date: 20090127
  Transmission Date: 20090719
  Serious: Yes (Death)
  Sender: FDA-Public Use
  Company Number: US-RB-009324-09

PATIENT
  Age: 5 Year
  Sex: Male

DRUGS (3)
  1. DEXTROMETHORPHAN [Suspect]
  2. OXYCODONE HCL [Suspect]
  3. LYRICA [Suspect]

REACTIONS (1)
  - OVERDOSE [None]
